FAERS Safety Report 5926715-1 (Version None)
Quarter: 2008Q4

REPORT INFORMATION
  Report Type: 
  Country: None (occurrence: None)
  Receive Date: 20081017
  Receipt Date: 20081002
  Transmission Date: 20090506
  Serious: Yes (Other)
  Sender: FDA-Public Use
  Company Number: ENT 2008-0161

PATIENT
  Age: 63 Year
  Sex: Male

DRUGS (6)
  1. COMTAN [Suspect]
     Indication: PARKINSON'S DISEASE
     Dosage: 200MG, QID
     Dates: start: 20080709, end: 20080810
  2. SIFROL [Suspect]
     Dosage: 1,25 MG, TID; 3 X 0,75MG; EVERY WEEK THE DOSE DECREASED WITH 3 X 0.25MG
     Dates: end: 20080724
  3. SIFROL [Suspect]
     Dosage: 1,25 MG, TID; 3 X 0,75MG; EVERY WEEK THE DOSE DECREASED WITH 3 X 0.25MG
     Dates: start: 20071220
  4. SINEMET [Concomitant]
  5. AVODART [Concomitant]
  6. TAMSULOSIN HCL [Concomitant]

REACTIONS (3)
  - DEPRESSION [None]
  - HALLUCINATION [None]
  - SUICIDAL IDEATION [None]
